FAERS Safety Report 15301421 (Version 2)
Quarter: 2018Q4

REPORT INFORMATION
  Report Type: Spontaneous
  Country: US (occurrence: US)
  Receive Date: 20180821
  Receipt Date: 20181227
  Transmission Date: 20190204
  Serious: Yes (Other)
  Sender: FDA-Public Use
  Company Number: US-SA-2018SA047222

PATIENT
  Age: 63 Year
  Sex: Female
  Weight: 63.5 kg

DRUGS (13)
  1. MELOXICAM. [Concomitant]
     Active Substance: MELOXICAM
  2. OCUVITE [ASCORBIC ACID;BETACAROTENE;COPPER;TOCOFERSOLAN;ZINC] [Concomitant]
  3. TYLENOL [Concomitant]
     Active Substance: ACETAMINOPHEN
  4. PARAPLATIN [Concomitant]
     Active Substance: CARBOPLATIN
  5. TAXOTERE [Suspect]
     Active Substance: DOCETAXEL
     Dosage: 1 UNK, Q3W
     Route: 042
     Dates: start: 20130411, end: 20130411
  6. FOSAMAX [Concomitant]
     Active Substance: ALENDRONATE SODIUM
  7. HERCEPTIN [Concomitant]
     Active Substance: TRASTUZUMAB
  8. ATENOLOL. [Concomitant]
     Active Substance: ATENOLOL
  9. FEMARA [Concomitant]
     Active Substance: LETROZOLE
  10. LIPITOR [Concomitant]
     Active Substance: ATORVASTATIN CALCIUM
  11. SYNTHROID [Concomitant]
     Active Substance: LEVOTHYROXINE SODIUM
  12. TAXOTERE [Suspect]
     Active Substance: DOCETAXEL
     Indication: BREAST CANCER FEMALE
     Dosage: 1 MG, Q3W
     Route: 042
     Dates: start: 20130117, end: 20130117
  13. XALATAN [Concomitant]
     Active Substance: LATANOPROST

REACTIONS (6)
  - Psychological trauma [Unknown]
  - Pain [Unknown]
  - Impaired quality of life [Unknown]
  - Anxiety [Unknown]
  - Emotional distress [Unknown]
  - Alopecia [Recovering/Resolving]

NARRATIVE: CASE EVENT DATE: 20130305
